FAERS Safety Report 20611390 (Version 1)
Quarter: 2022Q1

REPORT INFORMATION
  Report Type: Spontaneous
  Country: NL (occurrence: NL)
  Receive Date: 20220318
  Receipt Date: 20220318
  Transmission Date: 20220423
  Serious: Yes (Disabling)
  Sender: FDA-Public Use
  Company Number: None

PATIENT
  Sex: Male
  Weight: 106 kg

DRUGS (9)
  1. GABAPENTIN [Suspect]
     Active Substance: GABAPENTIN
     Indication: Polyneuropathy
     Dosage: FREQUENCY EVERY 8 H, 2 CAPS, 3X A DAY, INCREASING TO MAX 3600
     Dates: start: 2022
  2. ATORVASTATIN [Concomitant]
     Active Substance: ATORVASTATIN
  3. HYDROXOCOBALAMIN HYDROCHLORIDE [Concomitant]
     Active Substance: HYDROXOCOBALAMIN HYDROCHLORIDE
     Dosage: INJECTION FLUID, 500 UG/ML (MICROGRAMS PER MILLILITER)
  4. DULOXETINE [Concomitant]
     Active Substance: DULOXETINE
     Dosage: GASTRO-RESISTANT CAPSULE, 30 MG
  5. METFORMIN HYDROCHLORIDE [Concomitant]
     Active Substance: METFORMIN HYDROCHLORIDE
     Dosage: MODIFIED-RELEASE TABLET, 1000 MG
  6. OMEPRAZOLE [Concomitant]
     Active Substance: OMEPRAZOLE
     Dosage: GASTRO-RESISTANT CAPSULE, 20 MG
  7. INSULIN GLARGINE [Concomitant]
     Active Substance: INSULIN GLARGINE
     Dosage: INJECTION FLUID, 100 UNITS/ML
  8. FEXOFENADINE [Concomitant]
     Active Substance: FEXOFENADINE HYDROCHLORIDE
     Dosage: COATED TABLET, 180MG
  9. GLICLAZIDE [Concomitant]
     Active Substance: GLICLAZIDE
     Dosage: MODIFIED-RELEASE TABLET, 30MG

REACTIONS (2)
  - Blood glucose fluctuation [Not Recovered/Not Resolved]
  - Off label use [Unknown]
